FAERS Safety Report 5796111-9 (Version None)
Quarter: 2008Q3

REPORT INFORMATION
  Report Type: 
  Country: None (occurrence: None)
  Receive Date: 20080701
  Receipt Date: 20080627
  Transmission Date: 20090109
  Serious: Yes (Death, Life-Threatening)
  Sender: FDA-Public Use
  Company Number: DE-BRISTOL-MYERS SQUIBB COMPANY-14244081

PATIENT
  Age: 45 Year
  Sex: Female

DRUGS (2)
  1. TAXOL [Suspect]
  2. BEVACIZUMAB [Suspect]
     Indication: BREAST CANCER

REACTIONS (1)
  - HEPATIC CIRRHOSIS [None]
